FAERS Safety Report 7487730-2 (Version None)
Quarter: 2011Q2

REPORT INFORMATION
  Report Type: 
  Country: None (occurrence: None)
  Receive Date: 20110518
  Receipt Date: 20110509
  Transmission Date: 20111010
  Serious: Yes (Other)
  Sender: FDA-Public Use
  Company Number: PHHY2011US33925

PATIENT
  Sex: Male
  Weight: 96.145 kg

DRUGS (5)
  1. GILENYA [Suspect]
     Indication: MULTIPLE SCLEROSIS
     Dosage: 0.5 MG, QD
     Route: 048
     Dates: start: 20110101
  2. SYNTHROID [Concomitant]
     Dosage: 0.1 MG, QD
  3. PROVIGIL [Concomitant]
     Dosage: 200 MG, QD
  4. TRICOR [Concomitant]
     Dosage: 145 MG, QHS
  5. LEXAPRO [Concomitant]
     Dosage: 10 MG, DAILY
     Route: 048

REACTIONS (10)
  - DEEP VEIN THROMBOSIS [None]
  - LYMPHOCYTE COUNT DECREASED [None]
  - LYMPHOCYTE PERCENTAGE DECREASED [None]
  - DECREASED VIBRATORY SENSE [None]
  - CENTRAL NERVOUS SYSTEM LESION [None]
  - OEDEMA PERIPHERAL [None]
  - FALL [None]
  - PLEURISY [None]
  - TREMOR [None]
  - CEREBRAL ATROPHY [None]
